FAERS Safety Report 11494738 (Version 1)
Quarter: 2015Q3

REPORT INFORMATION
  Report Type: Report from Study
  Country: ZA (occurrence: ZA)
  Receive Date: 20150911
  Receipt Date: 20150911
  Transmission Date: 20151125
  Serious: Yes (Death, Other)
  Sender: FDA-Public Use
  Company Number: PHHY2015ZA109732

PATIENT
  Age: 66 Year
  Sex: Female

DRUGS (2)
  1. ACLASTA [Suspect]
     Active Substance: ZOLEDRONIC ACID
     Dosage: 1 DF, (5MG/100ML)
     Route: 065
     Dates: start: 201208, end: 201208
  2. ACLASTA [Suspect]
     Active Substance: ZOLEDRONIC ACID
     Indication: OSTEOPOROSIS
     Dosage: 1 DF, (5MG/100ML)
     Route: 065
     Dates: start: 201107

REACTIONS (2)
  - Death [Fatal]
  - Motor neurone disease [Unknown]

NARRATIVE: CASE EVENT DATE: 201505
